FAERS Safety Report 21842618 (Version 1)
Quarter: 2023Q1

REPORT INFORMATION
  Report Type: Report from Study
  Country: FR (occurrence: FR)
  Receive Date: 20230110
  Receipt Date: 20230110
  Transmission Date: 20230418
  Serious: Yes (Other)
  Sender: FDA-Public Use
  Company Number: FR-002147023-NVSC2023FR003995

PATIENT
  Sex: Female
  Weight: 48 kg

DRUGS (1)
  1. ALPELISIB [Suspect]
     Active Substance: ALPELISIB
     Indication: PIK3CA related overgrowth spectrum
     Dosage: 50 MG, QD
     Route: 065
     Dates: start: 20220817, end: 20221209

REACTIONS (5)
  - Toxic skin eruption [Recovered/Resolved]
  - Rash scarlatiniform [Unknown]
  - Erythema [Unknown]
  - Rash pruritic [Unknown]
  - Drug ineffective [Unknown]

NARRATIVE: CASE EVENT DATE: 20221205
